FAERS Safety Report 6073106-1 (Version None)
Quarter: 2009Q1

REPORT INFORMATION
  Report Type: 
  Country: None (occurrence: None)
  Receive Date: 20090206
  Receipt Date: 20090120
  Transmission Date: 20090719
  Serious: Yes (Other)
  Sender: FDA-Public Use
  Company Number: GXKR2009DE01437

PATIENT
  Sex: Female

DRUGS (1)
  1. RAMIPRIL + HYDROCHLOROTHIAZIDE [Suspect]
     Indication: PROPHYLAXIS
     Dates: start: 20080701

REACTIONS (2)
  - HYPERCALCAEMIA [None]
  - PARATHYROID DISORDER [None]
